FAERS Safety Report 15193246 (Version 2)
Quarter: 2018Q3

REPORT INFORMATION
  Report Type: Report from Study
  Country: US (occurrence: US)
  Receive Date: 20180725
  Receipt Date: 20180815
  Transmission Date: 20181010
  Serious: Yes (Hospitalization, Other)
  Sender: FDA-Public Use
  Company Number: US-EMD SERONO-E2B_90034987

PATIENT
  Age: 65 Year
  Sex: Female

DRUGS (1)
  1. REBIF [Suspect]
     Active Substance: INTERFERON BETA-1A
     Indication: MULTIPLE SCLEROSIS
     Route: 058
     Dates: start: 20171101

REACTIONS (8)
  - Feeling hot [Unknown]
  - Asthenia [Unknown]
  - Insomnia [Recovering/Resolving]
  - Vomiting [Unknown]
  - Fall [Unknown]
  - Seizure [Recovered/Resolved]
  - Peripheral venous disease [Unknown]
  - Aura [Unknown]

NARRATIVE: CASE EVENT DATE: 201712
